FAERS Safety Report 8502496-2 (Version None)
Quarter: 2012Q3

REPORT INFORMATION
  Report Type: 
  Country: None (occurrence: None)
  Receive Date: 20120711
  Receipt Date: 20120705
  Transmission Date: 20120928
  Serious: Yes (Hospitalization)
  Sender: FDA-Public Use
  Company Number: US-BAYER-2012-028764

PATIENT
  Age: 45 Year
  Sex: Female
  Weight: 100 kg

DRUGS (16)
  1. LITHIUM CARBONATE [Concomitant]
     Dosage: 450 MG, BID
     Route: 048
     Dates: start: 20090202
  2. IBUPROFEN [Concomitant]
     Dosage: 400 MG, EVERY 4-5 HOURS
     Route: 048
     Dates: start: 20090202
  3. LOXITANE [Concomitant]
     Dosage: 25 MG, 2 CAPSULES DAILY BEDTIME
     Route: 048
  4. MULTI-VITAMIN [Concomitant]
     Dosage: UNK
     Route: 048
     Dates: start: 20090325
  5. VANCOMYCIN [Concomitant]
  6. DROSPIRENONE AND ETHINYL ESTRADIOL [Suspect]
     Dosage: UNK
     Dates: start: 20090101, end: 20090401
  7. PERCOCET [Concomitant]
  8. YAZ [Suspect]
     Indication: POLYCYSTIC OVARIES
     Dosage: UNK
     Dates: start: 20090101, end: 20090401
  9. RHINOCORT [Concomitant]
     Dosage: 1 SPRAY EACH NOSTRIL, QD
     Route: 045
     Dates: start: 20090202
  10. YASMIN [Suspect]
     Dosage: UNK
     Dates: start: 20090101, end: 20090401
  11. ALLEGRA-D [FEXOFENADINE HYDROCHLORIDE,PSEUDOEPHEDRINE HYDROCHLORID [Concomitant]
     Dosage: UNK UNK, QD
     Route: 048
     Dates: start: 20090202
  12. ECHINACEA [Concomitant]
     Dosage: UNK
     Route: 048
     Dates: start: 20090325
  13. CITALOPRAM HYDROBROMIDE [Concomitant]
     Dosage: 20 MG, QD
     Dates: start: 20090202
  14. AMITRIPTYLINE HCL [Concomitant]
     Dosage: 25 MG, HS
  15. ASTELIN [Concomitant]
     Dosage: 137 MCG, 2 SPRAYS DAILY
     Route: 045
     Dates: start: 20090202
  16. CALCIUM [Concomitant]
     Dosage: UNK
     Route: 048
     Dates: start: 20090325

REACTIONS (7)
  - INJURY [None]
  - DEEP VEIN THROMBOSIS [None]
  - ANXIETY [None]
  - PULMONARY EMBOLISM [None]
  - GENERAL PHYSICAL HEALTH DETERIORATION [None]
  - PAIN [None]
  - EMOTIONAL DISTRESS [None]
